FAERS Safety Report 11330052 (Version 3)
Quarter: 2015Q4

REPORT INFORMATION
  Report Type: Spontaneous
  Country: HR (occurrence: HR)
  Receive Date: 20150803
  Receipt Date: 20151012
  Transmission Date: 20160304
  Serious: Yes (Other)
  Sender: FDA-Public Use
  Company Number: HR-JNJFOC-20150722726

PATIENT
  Sex: Male

DRUGS (8)
  1. VALSARTAN. [Concomitant]
     Active Substance: VALSARTAN
     Route: 065
  2. OXCARBAZEPINE. [Concomitant]
     Active Substance: OXCARBAZEPINE
     Route: 065
  3. LAMOTRIGINE. [Concomitant]
     Active Substance: LAMOTRIGINE
     Route: 065
  4. XARELTO [Suspect]
     Active Substance: RIVAROXABAN
     Indication: ATRIAL FIBRILLATION
     Route: 048
     Dates: start: 20150209
  5. INDAPAMIDE. [Concomitant]
     Active Substance: INDAPAMIDE
     Route: 065
  6. ATORVASTATIN [Concomitant]
     Active Substance: ATORVASTATIN
     Route: 065
  7. PEPTORAN [Concomitant]
     Active Substance: RANITIDINE HYDROCHLORIDE
     Route: 065
  8. XARELTO [Suspect]
     Active Substance: RIVAROXABAN
     Indication: CEREBROVASCULAR ACCIDENT PROPHYLAXIS
     Route: 048
     Dates: start: 20150209

REACTIONS (14)
  - Motor dysfunction [Unknown]
  - Muscle spasticity [Unknown]
  - Left atrial dilatation [Unknown]
  - Muscular weakness [Unknown]
  - Central nervous system lesion [Unknown]
  - Aortic dilatation [Unknown]
  - Memory impairment [Unknown]
  - Communication disorder [Unknown]
  - Ischaemic stroke [Recovering/Resolving]
  - Hemiparesis [Unknown]
  - Transient ischaemic attack [Unknown]
  - Diastolic dysfunction [Unknown]
  - Arteriosclerosis [Unknown]
  - Hearing impaired [Unknown]

NARRATIVE: CASE EVENT DATE: 20150722
